FAERS Safety Report 6030539-7 (Version None)
Quarter: 2009Q1

REPORT INFORMATION
  Report Type: 
  Country: None (occurrence: None)
  Receive Date: 20090106
  Receipt Date: 20090106
  Transmission Date: 20090719
  Serious: Yes (Death)
  Sender: FDA-Public Use
  Company Number: None

PATIENT
  Sex: Male

DRUGS (8)
  1. REVLIMID [Suspect]
     Indication: MULTIPLE MYELOMA
     Dosage: 15MG DAILY 21D/28D ORALLY
     Route: 048
  2. GABAPENTIN [Concomitant]
  3. METFORMIN HCL [Concomitant]
  4. DEXAMETHASONE [Concomitant]
  5. METOPROLOL [Concomitant]
  6. TERAZOSIN HCL [Concomitant]
  7. PROCRIT [Concomitant]
  8. AREDIA [Concomitant]

REACTIONS (6)
  - DISEASE PROGRESSION [None]
  - GENERAL PHYSICAL HEALTH DETERIORATION [None]
  - HYPERVISCOSITY SYNDROME [None]
  - MESOTHELIOMA [None]
  - SMALL CELL LUNG CANCER STAGE UNSPECIFIED [None]
  - THROMBOCYTOPENIA [None]
